FAERS Safety Report 15455231 (Version 1)
Quarter: 2018Q4

REPORT INFORMATION
  Report Type: Spontaneous
  Country: CA (occurrence: CA)
  Receive Date: 20181002
  Receipt Date: 20181002
  Transmission Date: 20190204
  Serious: Yes (Other)
  Sender: FDA-Public Use
  Company Number: CA-PFIZER INC-2018392295

PATIENT
  Age: 23 Year
  Sex: Male

DRUGS (1)
  1. CHILDRENS ADVIL [Suspect]
     Active Substance: IBUPROFEN
     Indication: PYREXIA
     Dosage: 6 ML, SINGLE
     Route: 048

REACTIONS (2)
  - Drug ineffective [Recovered/Resolved]
  - Febrile convulsion [Recovered/Resolved]
